FAERS Safety Report 14374201 (Version 2)
Quarter: 2018Q1

REPORT INFORMATION
  Report Type: Spontaneous
  Country: US (occurrence: US)
  Receive Date: 20180111
  Receipt Date: 20180203
  Transmission Date: 20180509
  Serious: Yes (Life-Threatening, Hospitalization, Other)
  Sender: FDA-Public Use
  Company Number: US-ACCORD-062649

PATIENT
  Age: 17 Year
  Sex: Female

DRUGS (3)
  1. CISPLATIN. [Concomitant]
     Active Substance: CISPLATIN
     Indication: OSTEOSARCOMA
  2. DOXORUBICIN [Concomitant]
     Active Substance: DOXORUBICIN
     Indication: OSTEOSARCOMA
  3. METHOTREXATE. [Suspect]
     Active Substance: METHOTREXATE
     Indication: OSTEOSARCOMA
     Dosage: 12 G/M2 INTRAVENOUSLY OVER 4 H??CYCLE 1, DAY 22
     Route: 042

REACTIONS (3)
  - Toxicity to various agents [Unknown]
  - Pleural effusion [Unknown]
  - Acute kidney injury [Recovered/Resolved]
